FAERS Safety Report 20407687 (Version 2)
Quarter: 2023Q1

REPORT INFORMATION
  Report Type: Report from Study
  Country: PR (occurrence: PR)
  Receive Date: 20220131
  Receipt Date: 20230130
  Transmission Date: 20230418
  Serious: Yes (Other)
  Sender: FDA-Public Use
  Company Number: PR-ABBVIE-21K-131-4058694-00

PATIENT
  Age: 61 Year
  Sex: Female
  Weight: 120 kg

DRUGS (25)
  1. HUMIRA [Suspect]
     Active Substance: ADALIMUMAB
     Indication: Rheumatoid arthritis
     Route: 058
     Dates: start: 2017
  2. HUMIRA [Suspect]
     Active Substance: ADALIMUMAB
  3. Montelukast (Singulair) 10 Milligram [Concomitant]
     Indication: Sleep apnoea syndrome
     Route: 048
     Dates: start: 2018
  4. ELASOMERAN [Concomitant]
     Active Substance: ELASOMERAN
     Indication: COVID-19 immunisation
     Dosage: 1ST DOSE
     Route: 030
     Dates: start: 20210514, end: 20210514
  5. ELASOMERAN [Concomitant]
     Active Substance: ELASOMERAN
     Indication: COVID-19 immunisation
     Dosage: 2ND DOSE
     Route: 030
     Dates: start: 20210618, end: 20210618
  6. ELASOMERAN [Concomitant]
     Active Substance: ELASOMERAN
     Indication: COVID-19 immunisation
     Dosage: 3RD DOSE
     Route: 030
     Dates: start: 20211230, end: 20211230
  7. ABILIFY [Concomitant]
     Active Substance: ARIPIPRAZOLE
     Indication: Anxiety
     Route: 048
     Dates: start: 202104
  8. KLONOPIN [Concomitant]
     Active Substance: CLONAZEPAM
     Indication: Anxiety
     Route: 048
     Dates: start: 2016
  9. KLONOPIN [Concomitant]
     Active Substance: CLONAZEPAM
     Indication: Anxiety
     Route: 048
     Dates: start: 2016
  10. Folic Acid 1 Milligram [Concomitant]
     Indication: Rheumatoid arthritis
     Route: 048
     Dates: start: 2019
  11. Diphenhydramine (Benadryl) 50 Milligram [Concomitant]
     Indication: Hypersensitivity
     Route: 048
     Dates: start: 2018
  12. ABILIFY : 2 Milligram [Concomitant]
     Indication: Anxiety
     Route: 048
     Dates: start: 202104
  13. CYMBALTA [Concomitant]
     Active Substance: DULOXETINE HYDROCHLORIDE
     Indication: Anxiety
     Route: 048
     Dates: start: 2016
  14. PROTONIX [Concomitant]
     Active Substance: PANTOPRAZOLE SODIUM
     Indication: Abdominal pain upper
     Route: 048
     Dates: start: 2016
  15. KLONOPIN [Concomitant]
     Active Substance: CLONAZEPAM
     Indication: Anxiety
     Route: 048
     Dates: start: 2016
  16. KLONOPIN [Concomitant]
     Active Substance: CLONAZEPAM
     Indication: Anxiety
     Route: 048
     Dates: start: 2016
  17. METHOTREXATE SODIUM 2.5 Milligram [Concomitant]
     Indication: Rheumatoid arthritis
     Route: 048
     Dates: start: 2019
  18. Pantoprazole (Protonix) 40 Milligram [Concomitant]
     Indication: Gastric disorder
     Route: 048
     Dates: start: 2016
  19. TRAZODONE HYDROCHLORIDE 150 Milligram [Concomitant]
     Indication: Insomnia
     Route: 048
     Dates: start: 2016
  20. Duloxetine (Cymbalta) 30 Milligram [Concomitant]
     Indication: Anxiety
     Route: 048
     Dates: start: 2016
  21. SINGULAIR [Concomitant]
     Active Substance: MONTELUKAST SODIUM
     Indication: Sleep apnoea syndrome
     Route: 048
     Dates: start: 2018
  22. BENADRYL [Concomitant]
     Active Substance: DIPHENHYDRAMINE HYDROCHLORIDE
     Indication: Hypersensitivity
     Route: 048
     Dates: start: 2018
  23. Nabumetone 500 Milligram [Concomitant]
     Indication: Rheumatoid arthritis
     Route: 048
     Dates: start: 2019
  24. INTEGRA PLUS [Concomitant]
     Active Substance: ASCORBIC ACID\BIOTIN\CALCIUM PANTOTHENATE\FERROUS ASPARTO GLYCINATE\FERROUS FUMARATE\FOLIC ACID\NIAC
     Indication: Haemoglobin
     Route: 048
     Dates: start: 20210812
  25. PENICILLIN [Concomitant]
     Active Substance: PENICILLIN
     Indication: Product used for unknown indication

REACTIONS (3)
  - Osteoarthritis [Recovered/Resolved]
  - Knee arthroplasty [Recovering/Resolving]
  - Arthralgia [Recovering/Resolving]

NARRATIVE: CASE EVENT DATE: 20210601
